FAERS Safety Report 6449268-0 (Version None)
Quarter: 2009Q4

REPORT INFORMATION
  Report Type: 
  Country: None (occurrence: None)
  Receive Date: 20091120
  Receipt Date: 20091120
  Transmission Date: 20100525
  Serious: Yes (Hospitalization)
  Sender: FDA-Public Use
  Company Number: PL-EISAI INC.-E2090-00885-CLI-PL

PATIENT
  Sex: Male
  Weight: 77 kg

DRUGS (1)
  1. E2090/CARBAMAZEPINE [Suspect]
     Indication: EPILEPSY
     Dosage: DOUBLE BLIND
     Route: 048
     Dates: start: 20090218

REACTIONS (1)
  - BACK PAIN [None]
